FAERS Safety Report 19032203 (Version 2)
Quarter: 2021Q2

REPORT INFORMATION
  Report Type: Report from Study
  Country: US (occurrence: US)
  Receive Date: 20210319
  Receipt Date: 20210517
  Transmission Date: 20210717
  Serious: Yes (Hospitalization)
  Sender: FDA-Public Use
  Company Number: NVSC2021US058067

PATIENT
  Age: 58 Year
  Sex: Male
  Weight: 93.9 kg

DRUGS (3)
  1. DEXAMETHASONE. [Suspect]
     Active Substance: DEXAMETHASONE
     Indication: PRODUCT USED FOR UNKNOWN INDICATION
     Dosage: 4 MG, Q8H
     Route: 065
  2. LUTATHERA [Suspect]
     Active Substance: LUTETIUM OXODOTREOTIDE LU-177
     Indication: PANCREATIC NEUROENDOCRINE TUMOUR
     Dosage: UNK (Q8W)
     Route: 042
     Dates: start: 20201214, end: 20210212
  3. LUTATHERA [Suspect]
     Active Substance: LUTETIUM OXODOTREOTIDE LU-177
     Dosage: UNK
     Route: 042
     Dates: start: 20210212

REACTIONS (7)
  - Headache [Recovered/Resolved]
  - Intracranial haematoma [Not Recovered/Not Resolved]
  - Oedema [Unknown]
  - Muscular weakness [Not Recovered/Not Resolved]
  - Hemiparesis [Unknown]
  - Haemorrhage intracranial [Not Recovered/Not Resolved]
  - Hypoaesthesia [Not Recovered/Not Resolved]

NARRATIVE: CASE EVENT DATE: 20210308
